FAERS Safety Report 11821169 (Version 2)
Quarter: 2019Q4

REPORT INFORMATION
  Report Type: Spontaneous
  Country: US (occurrence: US)
  Receive Date: 20151210
  Receipt Date: 20191111
  Transmission Date: 20200122
  Serious: No
  Sender: FDA-Public Use
  Company Number: US-JNJFOC-20150623694

PATIENT
  Age: 59 Year
  Sex: Male

DRUGS (3)
  1. IMBRUVICA [Suspect]
     Active Substance: IBRUTINIB
     Indication: CHRONIC LYMPHOCYTIC LEUKAEMIA
     Route: 048
     Dates: start: 20141002
  2. TOPAMAX [Concomitant]
     Active Substance: TOPIRAMATE
  3. ASCORBIC ACID. [Concomitant]
     Active Substance: ASCORBIC ACID

REACTIONS (3)
  - Dizziness [Unknown]
  - Feeling abnormal [Not Recovered/Not Resolved]
  - Disorientation [Unknown]

NARRATIVE: CASE EVENT DATE: 201410
